FAERS Safety Report 23814478 (Version 1)
Quarter: 2024Q2

REPORT INFORMATION
  Report Type: Spontaneous
  Country: RU (occurrence: RU)
  Receive Date: 20240503
  Receipt Date: 20240503
  Transmission Date: 20240716
  Serious: Yes (Other)
  Sender: FDA-Public Use
  Company Number: RU-ORGANON-O2404RUS003116

PATIENT
  Age: 20 Year
  Sex: Female

DRUGS (1)
  1. NUVARING [Suspect]
     Active Substance: ETHINYL ESTRADIOL\ETONOGESTREL
     Indication: Contraception
     Dosage: 1 RING
     Route: 067

REACTIONS (7)
  - Syncope [Unknown]
  - Lethargy [Unknown]
  - Asthenia [Unknown]
  - Mood swings [Unknown]
  - Malaise [Unknown]
  - Vaginal haemorrhage [Unknown]
  - Incorrect product administration duration [Unknown]
